FAERS Safety Report 16036414 (Version 1)
Quarter: 2019Q1

REPORT INFORMATION
  Report Type: Spontaneous
  Country: US (occurrence: US)
  Receive Date: 20190305
  Receipt Date: 20190305
  Transmission Date: 20190418
  Serious: No
  Sender: FDA-Public Use
  Company Number: US-ALLERGAN-1848386US

PATIENT
  Sex: Female

DRUGS (1)
  1. ESTRACE [Suspect]
     Active Substance: ESTRADIOL
     Indication: ATROPHIC VULVOVAGINITIS
     Dosage: 1/2 INCH AS NEEDED
     Route: 065

REACTIONS (3)
  - Malabsorption from application site [Unknown]
  - Product physical consistency issue [Unknown]
  - Incorrect dose administered [Unknown]
